APPROVED DRUG PRODUCT: CHILDREN'S CLARITIN
Active Ingredient: LORATADINE
Strength: 5MG
Dosage Form/Route: TABLET, CHEWABLE;ORAL
Application: N021891 | Product #001
Applicant: BAYER HEALTHCARE LLC
Approved: Aug 23, 2006 | RLD: Yes | RS: No | Type: OTC